FAERS Safety Report 18808595 (Version 1)
Quarter: 2021Q1

REPORT INFORMATION
  Report Type: Spontaneous
  Country: US (occurrence: US)
  Receive Date: 20210129
  Receipt Date: 20210129
  Transmission Date: 20210419
  Serious: Yes (Hospitalization, Disabling)
  Sender: FDA-Public Use
  Company Number: None

PATIENT
  Age: 83 Year
  Sex: Female
  Weight: 71.6 kg

DRUGS (2)
  1. DABIGATRAN [Suspect]
     Active Substance: DABIGATRAN
     Indication: ATRIAL FIBRILLATION
     Route: 048
     Dates: start: 20200515, end: 20201008
  2. ASPIRIN 81 MG DAILY [Concomitant]
     Active Substance: ASPIRIN

REACTIONS (6)
  - Haematocrit decreased [None]
  - Confusional state [None]
  - Unresponsive to stimuli [None]
  - Haemoglobin decreased [None]
  - Cerebral haematoma [None]
  - Brain oedema [None]

NARRATIVE: CASE EVENT DATE: 20201008
